FAERS Safety Report 20674524 (Version 1)
Quarter: 2022Q2

REPORT INFORMATION
  Report Type: Spontaneous
  Country: US (occurrence: None)
  Receive Date: 20220404
  Receipt Date: 20220404
  Transmission Date: 20220721
  Serious: Yes (Life-Threatening, Hospitalization, Disabling)
  Sender: FDA-Public Use
  Company Number: None

PATIENT
  Age: 63 Year
  Sex: Female
  Weight: 49.9 kg

DRUGS (3)
  1. FIRDAPSE [Suspect]
     Active Substance: AMIFAMPRIDINE PHOSPHATE
     Indication: Myasthenic syndrome
     Dosage: OTHER QUANTITY : 110 MG PER DAY;?FREQUENCY : AS NEEDED;?
     Route: 048
     Dates: start: 201801
  2. MESTINON [Concomitant]
     Active Substance: PYRIDOSTIGMINE BROMIDE
  3. PREDNISONE [Concomitant]
     Active Substance: PREDNISONE

REACTIONS (8)
  - Drug ineffective [None]
  - Burning sensation [None]
  - Paraesthesia [None]
  - Diarrhoea [None]
  - Dizziness [None]
  - Dyspnoea [None]
  - Asthenia [None]
  - Suspected product quality issue [None]

NARRATIVE: CASE EVENT DATE: 20180708
